FAERS Safety Report 18200818 (Version 1)
Quarter: 2020Q3

REPORT INFORMATION
  Report Type: Other
  Country: US (occurrence: US)
  Receive Date: 20200826
  Receipt Date: 20200826
  Transmission Date: 20201103
  Serious: Yes (Life-Threatening)
  Sender: FDA-Public Use
  Company Number: US-STANDARD HOMEOPATHIC COMPANY-2089066

PATIENT
  Age: 30 Year
  Sex: Male

DRUGS (4)
  1. CALM TABLETS [Suspect]
     Active Substance: HOMEOPATHICS
     Indication: ANXIETY
     Route: 048
     Dates: start: 20200812, end: 20200812
  2. CALM TABLETS [Suspect]
     Active Substance: HOMEOPATHICS
     Indication: RESTLESSNESS
     Route: 048
     Dates: start: 20200812, end: 20200812
  3. CALM TABLETS [Suspect]
     Active Substance: HOMEOPATHICS
     Indication: IRRITABILITY
     Route: 048
     Dates: start: 20200812, end: 20200812
  4. CALM TABLETS [Suspect]
     Active Substance: HOMEOPATHICS
     Indication: NERVOUSNESS
     Route: 048
     Dates: start: 20200812, end: 20200812

REACTIONS (1)
  - Multiple allergies [None]
